FAERS Safety Report 8691026 (Version 2)
Quarter: 2012Q4

REPORT INFORMATION
  Report Type: Report from Study
  Country: US (occurrence: US)
  Receive Date: 20120730
  Receipt Date: 20120918
  Transmission Date: 20130627
  Serious: Yes (Hospitalization)
  Sender: FDA-Public Use
  Company Number: US-JNJFOC-20120710949

PATIENT
  Age: 33 None
  Sex: Male
  Weight: 105.69 kg

DRUGS (9)
  1. REMICADE [Suspect]
     Indication: COLITIS ULCERATIVE
     Route: 042
     Dates: start: 201204, end: 201204
  2. ASACOL [Concomitant]
     Indication: COLITIS
     Route: 048
     Dates: start: 20120331, end: 201205
  3. PROTONIX [Concomitant]
     Indication: HYPERCHLORHYDRIA
     Route: 048
     Dates: start: 20120331
  4. ZOFRAN [Concomitant]
     Indication: NAUSEA
     Route: 048
     Dates: start: 20120331
  5. FERROUS SULFATE [Concomitant]
     Indication: ANAEMIA
     Route: 048
     Dates: start: 20120331, end: 201205
  6. ROXICODONE [Concomitant]
     Indication: COLITIS
     Dates: start: 20120331
  7. DILAUDID [Concomitant]
     Indication: PAIN
     Dates: start: 20120331
  8. PREDNISONE [Concomitant]
     Indication: COLITIS
     Dates: start: 20120403
  9. FLAGYL [Concomitant]
     Indication: CLOSTRIDIAL INFECTION
     Dates: start: 201204, end: 201204

REACTIONS (7)
  - Colitis ulcerative [Recovered/Resolved]
  - Arthritis [Not Recovered/Not Resolved]
  - Weight increased [Not Recovered/Not Resolved]
  - Abasia [Recovered/Resolved]
  - Hypersensitivity [Recovering/Resolving]
  - Bone pain [Recovered/Resolved]
  - Clostridium difficile infection [Unknown]
